FAERS Safety Report 6790955-2 (Version None)
Quarter: 2010Q2

REPORT INFORMATION
  Report Type: 
  Country: None (occurrence: None)
  Receive Date: 20100624
  Receipt Date: 20100617
  Transmission Date: 20101027
  Serious: Yes (Life-Threatening, Hospitalization, Disabling)
  Sender: FDA-Public Use
  Company Number: DE-MERCK-1005DEU00028

PATIENT
  Age: 52 Year
  Sex: Male
  Weight: 95 kg

DRUGS (12)
  1. JANUVIA [Suspect]
     Indication: TYPE 2 DIABETES MELLITUS
     Route: 048
     Dates: start: 20100204
  2. TORSEMIDE [Concomitant]
     Indication: HYPERTENSION
     Route: 048
  3. TORSEMIDE [Concomitant]
     Indication: CARDIAC FAILURE
     Route: 048
  4. INDAPAMIDE AND PERINDOPRIL ARGININE [Concomitant]
     Indication: HYPERTENSION
     Route: 048
  5. INDAPAMIDE AND PERINDOPRIL ARGININE [Concomitant]
     Indication: CARDIAC FAILURE
     Route: 048
  6. LERCANIDIPINE HYDROCHLORIDE [Concomitant]
     Indication: HYPERTENSION
     Route: 048
  7. LERCANIDIPINE HYDROCHLORIDE [Concomitant]
     Indication: CARDIAC FAILURE
     Route: 048
  8. CARVEDILOL [Concomitant]
     Indication: HYPERTENSION
     Route: 048
  9. CARVEDILOL [Concomitant]
     Indication: CARDIAC FAILURE
     Route: 048
  10. PANTOPRAZOLE SODIUM [Concomitant]
     Route: 048
  11. ALLOPURINOL [Concomitant]
     Indication: HYPERURICAEMIA
     Route: 048
  12. ACETYLCYSTEINE [Concomitant]
     Indication: CHRONIC OBSTRUCTIVE PULMONARY DISEASE
     Route: 048

REACTIONS (3)
  - BLOOD TRIGLYCERIDES INCREASED [None]
  - THALAMIC INFARCTION [None]
  - WHITE BLOOD CELL COUNT INCREASED [None]
